FAERS Safety Report 24232230 (Version 1)
Quarter: 2024Q3

REPORT INFORMATION
  Report Type: Spontaneous
  Country: CN (occurrence: CN)
  Receive Date: 20240821
  Receipt Date: 20240821
  Transmission Date: 20241017
  Serious: Yes (Other)
  Sender: PFIZER
  Company Number: CN-PFIZER INC-PV202400108013

PATIENT
  Age: 59 Year
  Sex: Male

DRUGS (1)
  1. CYTARABINE [Suspect]
     Active Substance: CYTARABINE
     Indication: Chemotherapy
     Dosage: 1.5 G, 1X/DAY
     Route: 041
     Dates: start: 20240806, end: 20240808

REACTIONS (3)
  - Pyrexia [Recovering/Resolving]
  - Temperature intolerance [Recovering/Resolving]
  - Chills [Recovering/Resolving]

NARRATIVE: CASE EVENT DATE: 20240806
